FAERS Safety Report 8349474-4 (Version None)
Quarter: 2012Q2

REPORT INFORMATION
  Report Type: 
  Country: None (occurrence: None)
  Receive Date: 20120510
  Receipt Date: 20120503
  Transmission Date: 20120825
  Serious: Yes (Other)
  Sender: FDA-Public Use
  Company Number: GR-AMGEN-GRCSP2012028143

PATIENT
  Age: 75 Year
  Sex: Female

DRUGS (3)
  1. CINACALCET HYDROCHLORIDE [Suspect]
     Dosage: 60 MG, UNK
     Route: 048
  2. CINACALCET HYDROCHLORIDE [Suspect]
     Indication: HYPERPARATHYROIDISM SECONDARY
     Dosage: 90 MG, UNK
     Route: 048
     Dates: start: 20120301
  3. CINACALCET HYDROCHLORIDE [Suspect]
     Dosage: 30 MG, QD
     Route: 048
     Dates: end: 20120410

REACTIONS (1)
  - EOSINOPHILIA [None]
